FAERS Safety Report 7814981-7 (Version None)
Quarter: 2011Q4

REPORT INFORMATION
  Report Type: 
  Country: None (occurrence: None)
  Receive Date: 20111014
  Receipt Date: 20090628
  Transmission Date: 20120403
  Serious: Yes (Other)
  Sender: FDA-Public Use
  Company Number: US-GLAXOSMITHKLINE-A0795539A

PATIENT
  Sex: Female

DRUGS (6)
  1. STRATTERA [Concomitant]
  2. ASPIRIN [Concomitant]
  3. IRON [Concomitant]
  4. LAMICTAL [Suspect]
     Indication: BIPOLAR DISORDER
     Dosage: 100MG FOUR TIMES PER DAY
     Route: 048
     Dates: start: 20050101
  5. CALCIUM CARBONATE [Concomitant]
  6. MULTI-VITAMIN [Concomitant]

REACTIONS (5)
  - NAUSEA [None]
  - RETCHING [None]
  - GASTROINTESTINAL HAEMORRHAGE [None]
  - DYSPHAGIA [None]
  - VOMITING [None]
